FAERS Safety Report 9477564 (Version 1)
Quarter: 2013Q3

REPORT INFORMATION
  Report Type: Report from Study
  Country: US (occurrence: US)
  Receive Date: 20130827
  Receipt Date: 20130827
  Transmission Date: 20140515
  Serious: Yes (Other)
  Sender: FDA-Public Use
  Company Number: US-ACTELION-A-US2013-87396

PATIENT
  Age: 49 Year
  Sex: Female

DRUGS (15)
  1. TRACLEER [Suspect]
     Indication: PULMONARY ARTERIAL HYPERTENSION
     Dosage: 125 MG, BID
     Route: 048
     Dates: start: 200701
  2. LORAZEPAM [Concomitant]
     Dosage: 0.5 MG, QD
  3. LEVEMIR [Concomitant]
     Dosage: 15 UNK, QD
  4. METHOTREXATE [Concomitant]
     Dosage: 2.5 MG, Q1WEEK
  5. BUMEX [Concomitant]
     Dosage: 2 MG, BID
  6. METFORMIN [Concomitant]
     Dosage: 1000 MG, BID
  7. GLIPIZIDE [Concomitant]
     Dosage: 10 MG, BID
  8. DILTIAZEM [Concomitant]
     Dosage: 360 MG, QD
  9. MAGNESIUM [Concomitant]
     Dosage: 40 MG, QD
  10. SIMVASTATIN [Concomitant]
     Dosage: 10 MG, QD
  11. POTASSIUM [Concomitant]
     Dosage: 20 MEQ, QD
  12. FERROUS SULFATE [Concomitant]
     Dosage: 325 MG, QD
  13. FOLIC ACID [Concomitant]
     Dosage: 1 MG, QD
  14. AMBIEN [Concomitant]
     Dosage: 5 MG, UNK
  15. METOLAZONE [Concomitant]
     Dosage: 2.5 MG, UNK

REACTIONS (1)
  - Blood glucose increased [Recovering/Resolving]
